FAERS Safety Report 9565336 (Version 1)
Quarter: 2013Q3

REPORT INFORMATION
  Report Type: Spontaneous
  Country: US (occurrence: US)
  Receive Date: 20130930
  Receipt Date: 20130930
  Transmission Date: 20140515
  Serious: Yes (Other)
  Sender: FDA-Public Use
  Company Number: US-GILEAD-2013-0084120

PATIENT
  Age: 82 Year
  Sex: Female

DRUGS (1)
  1. LETAIRIS [Suspect]
     Indication: PRODUCT USED FOR UNKNOWN INDICATION
     Dosage: 5 MG, UNK
     Route: 048
     Dates: start: 20130829, end: 20130923

REACTIONS (6)
  - Pneumonia [Unknown]
  - Unevaluable event [Unknown]
  - Unevaluable event [Unknown]
  - Diarrhoea [Unknown]
  - Swelling [Unknown]
  - Fluid retention [Unknown]
